FAERS Safety Report 6697765-5 (Version None)
Quarter: 2010Q2

REPORT INFORMATION
  Report Type: 
  Country: None (occurrence: None)
  Receive Date: 20100423
  Receipt Date: 20100408
  Transmission Date: 20101027
  Serious: Yes (Hospitalization)
  Sender: FDA-Public Use
  Company Number: 009145

PATIENT
  Sex: Female
  Weight: 62.9 kg

DRUGS (9)
  1. LEVETIRACETAM [Suspect]
     Indication: EPILEPSY
     Dosage: 1250 MG BID ORAL
     Route: 048
     Dates: start: 20071010
  2. TEGRETOL [Suspect]
     Indication: EPILEPSY
     Dosage: 150 MG BID ORAL, 100 MG BID ORAL
     Route: 048
     Dates: start: 20090120, end: 20100319
  3. TEGRETOL [Suspect]
     Indication: EPILEPSY
     Dosage: 150 MG BID ORAL, 100 MG BID ORAL
     Route: 048
     Dates: start: 20100320
  4. GABAPENTINE (GABAPEN) (NOT SPECIFIED) [Suspect]
     Indication: EPILEPSY
     Dosage: 800 MG TID ORAL
     Route: 048
     Dates: start: 20090603
  5. HIRNAMIN /00038601/  (HIRNAMIN) [Suspect]
     Indication: RESTLESSNESS
     Dosage: 25 MG BID ORAL
     Route: 048
     Dates: start: 20090407, end: 20100319
  6. EPINASTINE HYDROCHLORIDE [Concomitant]
  7. SENNOSIDE /00571902/ [Concomitant]
  8. SODIUM PICOSULFATE [Concomitant]
  9. AZULENE SODIUM SULFONATE [Concomitant]

REACTIONS (6)
  - DIZZINESS [None]
  - DRUG TOXICITY [None]
  - DYSARTHRIA [None]
  - DYSSTASIA [None]
  - OVERDOSE [None]
  - SOMNOLENCE [None]
